FAERS Safety Report 13243186 (Version 1)
Quarter: 2017Q1

REPORT INFORMATION
  Report Type: Spontaneous
  Country: US (occurrence: US)
  Receive Date: 20170216
  Receipt Date: 20170216
  Transmission Date: 20170428
  Serious: Yes (Other)
  Sender: FDA-Public Use
  Company Number: None

PATIENT
  Age: 58 Year
  Sex: Female
  Weight: 69.75 kg

DRUGS (8)
  1. SIMVASTIN [Concomitant]
     Active Substance: SIMVASTATIN
  2. GAMMAGARD LIQUID [Suspect]
     Active Substance: HUMAN IMMUNOGLOBULIN G
     Indication: IMMUNODEFICIENCY
     Dosage: ?          QUANTITY:1 35G;OTHER FREQUENCY:EVERY 21 DAY INFUS;OTHER ROUTE:IV?
     Route: 042
     Dates: start: 20120101
  3. INFUSION PUMP [Concomitant]
     Active Substance: DEVICE
  4. HYDROCODONE/ACETAPHETAMINE [Concomitant]
  5. ALLEGRA [Concomitant]
     Active Substance: FEXOFENADINE HYDROCHLORIDE
  6. LEVOXYL [Concomitant]
     Active Substance: LEVOTHYROXINE SODIUM
  7. BACLOFEN. [Concomitant]
     Active Substance: BACLOFEN
  8. NIFIDPINE [Concomitant]

REACTIONS (7)
  - Migraine [None]
  - Diarrhoea [None]
  - Malaise [None]
  - Condition aggravated [None]
  - Drug dispensing error [None]
  - Expired product administered [None]
  - Muscle disorder [None]

NARRATIVE: CASE EVENT DATE: 20170204
